FAERS Safety Report 4361397-4 (Version None)
Quarter: 2004Q2

REPORT INFORMATION
  Report Type: 
  Country: None (occurrence: None)
  Receive Date: 20040517
  Receipt Date: 20040503
  Transmission Date: 20050107
  Serious: Yes (Hospitalization, Other)
  Sender: FDA-Public Use
  Company Number: 2004029398

PATIENT
  Age: 45 Year
  Sex: Male
  Weight: 66.2252 kg

DRUGS (15)
  1. NEURONTIN [Suspect]
     Indication: CONVULSION
     Dosage: 3600 MG (TID), ORAL
     Route: 048
     Dates: start: 20040109, end: 20040401
  2. TEMOZOLOMIDE (TEMOZOLOMIDE) [Suspect]
     Indication: GLIOBLASTOMA MULTIFORME
     Dosage: 80 MG (QD), ORAL
     Route: 048
     Dates: start: 20020808, end: 20040323
  3. BACTRIM [Suspect]
     Indication: INFECTION PROPHYLAXIS
     Dosage: ORAL
     Route: 048
     Dates: start: 20020801, end: 20040323
  4. LEVOFLOXACIN [Suspect]
     Indication: UPPER RESPIRATORY TRACT INFECTION
     Dosage: ORAL
     Route: 048
     Dates: start: 20040101, end: 20040101
  5. THALIDOMIDE (THALIDOMIDE) [Suspect]
     Indication: ILL-DEFINED DISORDER
     Dosage: 1200 MG (QD)
     Dates: start: 20020701, end: 20040323
  6. HEPARIN [Suspect]
     Indication: ILL-DEFINED DISORDER
     Dosage: INTRAVENOUS
     Route: 042
  7. FAMCICLOVIR (FAMCICLOVIR) [Concomitant]
  8. CODEINE (CODEINE) [Concomitant]
  9. PHENOBARBITAL TAB [Concomitant]
  10. ACETYLSALICYLIC ACID SRT [Concomitant]
  11. HEPARIN-FRACTION, SODIUM SALT (HEPARIN-FRACTION, SODIUM SALT) [Concomitant]
  12. CARMUSTINE [Concomitant]
  13. PACLITAXEL [Concomitant]
  14. IRINOTECAN (IRINOTECAN) [Concomitant]
  15. CEFTRIAXONE [Concomitant]

REACTIONS (20)
  - APLASTIC ANAEMIA [None]
  - BACTERIAL INFECTION [None]
  - BONE MARROW DEPRESSION [None]
  - BRONCHITIS [None]
  - CATHETER RELATED INFECTION [None]
  - CATHETER SITE PAIN [None]
  - CONJUNCTIVAL HAEMORRHAGE [None]
  - COUGH [None]
  - EAR PAIN [None]
  - FLUID INTAKE REDUCED [None]
  - HEADACHE [None]
  - HERPETIC STOMATITIS [None]
  - MALAISE [None]
  - MARKEDLY REDUCED DIETARY INTAKE [None]
  - MYALGIA [None]
  - ORAL MUCOSAL PETECHIAE [None]
  - PAIN [None]
  - PETECHIAE [None]
  - SEPSIS [None]
  - UPPER RESPIRATORY TRACT INFECTION [None]
